FAERS Safety Report 7999607-4 (Version None)
Quarter: 2011Q4

REPORT INFORMATION
  Report Type: 
  Country: None (occurrence: None)
  Receive Date: 20111221
  Receipt Date: 20111215
  Transmission Date: 20120403
  Serious: Yes (Hospitalization, Disabling, Other)
  Sender: FDA-Public Use
  Company Number: US-MERCK-1109USA02130

PATIENT
  Age: 50 Year
  Sex: Female
  Weight: 84 kg

DRUGS (15)
  1. BENICAR [Concomitant]
     Route: 065
     Dates: start: 19980101
  2. ALENDRONATE SODIUM [Suspect]
     Route: 048
     Dates: start: 20090901, end: 20091125
  3. FOSAMAX [Suspect]
     Route: 048
     Dates: start: 20020116
  4. FOSAMAX [Suspect]
     Route: 048
     Dates: start: 20020213
  5. FOSAMAX [Suspect]
     Indication: OSTEOPENIA
     Route: 048
     Dates: start: 19980101, end: 20100101
  6. FOSAMAX [Suspect]
     Route: 048
     Dates: start: 20020116
  7. ESTRACE [Concomitant]
     Indication: MENOPAUSE
     Route: 065
     Dates: start: 19960101
  8. ALENDRONATE SODIUM [Suspect]
     Indication: OSTEOPOROSIS
     Route: 048
  9. MULTI VITE [Concomitant]
     Route: 048
  10. CALCIUM (UNSPECIFIED) [Concomitant]
     Route: 048
  11. FOSAMAX [Suspect]
     Route: 048
     Dates: start: 20020213
  12. VITA C [Concomitant]
     Route: 065
  13. ALENDRONATE SODIUM [Suspect]
     Route: 048
     Dates: start: 20090901, end: 20091125
  14. FOSAMAX [Suspect]
     Indication: OSTEOPOROSIS
     Route: 048
     Dates: start: 19980101, end: 20100101
  15. ALENDRONATE SODIUM [Suspect]
     Indication: OSTEOPENIA
     Route: 048

REACTIONS (23)
  - DEPRESSION [None]
  - DECREASED APPETITE [None]
  - INSOMNIA [None]
  - BLOOD CHOLESTEROL INCREASED [None]
  - LOW TURNOVER OSTEOPATHY [None]
  - INAPPROPRIATE SCHEDULE OF DRUG ADMINISTRATION [None]
  - ECZEMA [None]
  - HYPERLIPIDAEMIA [None]
  - CARDIAC DISORDER [None]
  - PANCREATITIS [None]
  - IMPAIRED HEALING [None]
  - FALL [None]
  - TYPE 2 DIABETES MELLITUS [None]
  - BLOOD PRESSURE INCREASED [None]
  - ANXIETY [None]
  - VITAMIN D DEFICIENCY [None]
  - RHINITIS ALLERGIC [None]
  - FATIGUE [None]
  - FEMUR FRACTURE [None]
  - RENAL ARTERY STENOSIS [None]
  - HYPERSENSITIVITY [None]
  - HORMONE LEVEL ABNORMAL [None]
  - ASTHMA [None]
